FAERS Safety Report 8246944-4 (Version None)
Quarter: 2012Q1

REPORT INFORMATION
  Report Type: 
  Country: None (occurrence: None)
  Receive Date: 20120330
  Receipt Date: 20120319
  Transmission Date: 20120608
  Serious: Yes (Hospitalization)
  Sender: FDA-Public Use
  Company Number: US-SANOFI-AVENTIS-2012SA019216

PATIENT
  Age: 73 Year
  Sex: Female

DRUGS (10)
  1. SPIRIVA [Concomitant]
     Dosage: HAND INHALER
  2. PACERONE [Concomitant]
     Route: 065
     Dates: end: 20101201
  3. DIGOXIN [Concomitant]
  4. FUROSEMIDE [Concomitant]
  5. THEOPHYLLINE [Concomitant]
  6. COREG [Concomitant]
  7. MULTAQ [Suspect]
     Indication: ATRIAL FIBRILLATION
     Route: 048
     Dates: start: 20101201
  8. ADVAIR DISKUS 100/50 [Concomitant]
     Dosage: 250/50
  9. WARFARIN SODIUM [Concomitant]
  10. MULTI-VITAMINS [Concomitant]

REACTIONS (3)
  - PNEUMONIA [None]
  - RESPIRATORY DISORDER [None]
  - CARDIAC FAILURE [None]
